FAERS Safety Report 13300620 (Version 1)
Quarter: 2017Q1

REPORT INFORMATION
  Report Type: Spontaneous
  Country: US (occurrence: US)
  Receive Date: 20170307
  Receipt Date: 20170307
  Transmission Date: 20170428
  Serious: Yes (Hospitalization)
  Sender: FDA-Public Use
  Company Number: US-AUROBINDO-AUR-APL-2017-30461

PATIENT

DRUGS (5)
  1. ETIZOLAM [Concomitant]
     Active Substance: ETIZOLAM
     Indication: PRODUCT USED FOR UNKNOWN INDICATION
     Route: 065
  2. FENTANYL. [Concomitant]
     Active Substance: FENTANYL
     Indication: PRODUCT USED FOR UNKNOWN INDICATION
     Route: 065
  3. BENZOYLECGONINE [Concomitant]
     Active Substance: BENZOYLECGONINE
     Indication: PRODUCT USED FOR UNKNOWN INDICATION
  4. ALPRAZOLAM TABLETS [Suspect]
     Active Substance: ALPRAZOLAM
     Indication: PRODUCT USED FOR UNKNOWN INDICATION
     Route: 065
  5. COCAINE [Concomitant]
     Active Substance: COCAINE
     Indication: PRODUCT USED FOR UNKNOWN INDICATION

REACTIONS (12)
  - Rhabdomyolysis [Recovering/Resolving]
  - Alanine aminotransferase increased [Recovering/Resolving]
  - Neuropathy peripheral [Recovering/Resolving]
  - Counterfeit drug administered [Recovering/Resolving]
  - Paraesthesia [Recovering/Resolving]
  - Leukocytosis [Recovering/Resolving]
  - Aspartate aminotransferase increased [Recovering/Resolving]
  - Acute kidney injury [Recovering/Resolving]
  - Asthenia [Recovering/Resolving]
  - Troponin I increased [Recovering/Resolving]
  - Myocardial ischaemia [Recovering/Resolving]
  - Sedation [Recovering/Resolving]
